FAERS Safety Report 17796640 (Version 2)
Quarter: 2020Q2

REPORT INFORMATION
  Report Type: Spontaneous
  Country: FR (occurrence: FR)
  Receive Date: 20200518
  Receipt Date: 20200522
  Transmission Date: 20200714
  Serious: Yes (Other)
  Sender: FDA-Public Use
  Company Number: FR-US-PROVELL PHARMACEUTICALS LLC-9001884

PATIENT
  Age: 38 Year
  Sex: Female
  Weight: 60 kg

DRUGS (6)
  1. LEVOTHYROX [Suspect]
     Active Substance: LEVOTHYROXINE
     Dosage: THERAPY START DATE: 14 JUL 2017
  2. CYNOMEL [Concomitant]
     Active Substance: LIOTHYRONINE SODIUM
     Dosage: 1 TABLET AT 50 EVERY DAY AND 25 IN 2 EVERY OTHER DAY (50 AND 62.5) ALTERNATELY, AND HALF TABLET
  3. CYNOMEL [Concomitant]
     Active Substance: LIOTHYRONINE SODIUM
     Dosage: 0.75 DF PER DAY
  4. LEVOTHYROX [Suspect]
     Active Substance: LEVOTHYROXINE
     Dosage: ALTERNATELY EVERY OTHER DAY 62.5 AND 50 MICROGRAMS OF LEVOTHYROX
  5. LEVOTHYROX [Suspect]
     Active Substance: LEVOTHYROXINE
     Indication: POST PROCEDURAL HYPOTHYROIDISM
     Dosage: THERAPY START DATE APR 2017
     Dates: start: 2017, end: 2017
  6. CYNOMEL [Concomitant]
     Active Substance: LIOTHYRONINE SODIUM
     Indication: PRODUCT USED FOR UNKNOWN INDICATION
     Dosage: 0.5 DF PER  DAY WITH BIOLOGY CONTROL IN 5 WEEKS

REACTIONS (52)
  - Irritability [Recovering/Resolving]
  - Nausea [Unknown]
  - Diarrhoea [Recovering/Resolving]
  - Asthenia [Recovering/Resolving]
  - Hyperacusis [Unknown]
  - Tremor [Recovering/Resolving]
  - Tri-iodothyronine free decreased [Unknown]
  - Anxiety [Recovering/Resolving]
  - Abdominal pain lower [Recovered/Resolved]
  - Eye pain [Recovered/Resolved]
  - Dyspnoea [Recovering/Resolving]
  - Limb injury [Unknown]
  - Chest pain [Recovered/Resolved]
  - Hyperthyroidism [Recovering/Resolving]
  - Fatigue [Recovering/Resolving]
  - Self esteem decreased [Unknown]
  - Apathy [Recovering/Resolving]
  - Fear [Recovering/Resolving]
  - Weight decreased [Unknown]
  - Frustration tolerance decreased [Unknown]
  - Psychomotor hyperactivity [Unknown]
  - Affective disorder [Recovering/Resolving]
  - Impaired healing [Unknown]
  - Agitation [Recovering/Resolving]
  - Night sweats [Unknown]
  - Thyroxine free decreased [Unknown]
  - Menorrhagia [Unknown]
  - Hot flush [Recovering/Resolving]
  - Depression [Recovering/Resolving]
  - Fall [Unknown]
  - Migraine [Unknown]
  - Dysstasia [Unknown]
  - Sleep disorder [Unknown]
  - Vision blurred [Unknown]
  - Palpitations [Recovering/Resolving]
  - Overdose [Unknown]
  - Myalgia [Recovered/Resolved]
  - Vertigo [Recovering/Resolving]
  - Dizziness [Unknown]
  - Gait disturbance [Unknown]
  - Blood thyroid stimulating hormone decreased [Unknown]
  - Anger [Unknown]
  - Dry eye [Unknown]
  - Insomnia [Unknown]
  - Decreased appetite [Unknown]
  - Muscle spasms [Recovering/Resolving]
  - Headache [Recovering/Resolving]
  - Neck pain [Recovered/Resolved]
  - Visual impairment [Unknown]
  - Arthralgia [Recovered/Resolved]
  - Gamma-glutamyltransferase increased [Not Recovered/Not Resolved]
  - Loss of personal independence in daily activities [Unknown]

NARRATIVE: CASE EVENT DATE: 2017
